FAERS Safety Report 5337693-0 (Version None)
Quarter: 2007Q2

REPORT INFORMATION
  Report Type: 
  Country: None (occurrence: None)
  Receive Date: 20070315
  Receipt Date: 20060724
  Transmission Date: 20071010
  Serious: Yes (Hospitalization)
  Sender: FDA-Public Use
  Company Number: PHEH2006US04881

PATIENT
  Age: 44 Year
  Sex: Female

DRUGS (10)
  1. TRILEPTAL [Suspect]
     Indication: AFFECTIVE DISORDER
     Dosage: 150 MG, BID, ORAL
     Route: 048
     Dates: start: 20060301, end: 20060101
  2. LISINOPRIL [Concomitant]
  3. NORVASC [Concomitant]
  4. HYDROCHLOROTHIAZIDE [Concomitant]
  5. PROPRANOLOL [Concomitant]
  6. PRILOSEC [Concomitant]
  7. ZETIA [Concomitant]
  8. ALLEGRA [Concomitant]
  9. ALBUTEROL [Concomitant]
  10. WELLBUTRIN [Concomitant]

REACTIONS (4)
  - ABDOMINAL PAIN [None]
  - AFFECT LABILITY [None]
  - DIZZINESS POSTURAL [None]
  - PANIC ATTACK [None]
